FAERS Safety Report 25649919 (Version 1)
Quarter: 2025Q3

REPORT INFORMATION
  Report Type: Spontaneous
  Country: CA (occurrence: CA)
  Receive Date: 20250806
  Receipt Date: 20250806
  Transmission Date: 20251021
  Serious: Yes (Other)
  Sender: GRIFOLS
  Company Number: CA-IGSA-BIG0036857

PATIENT
  Sex: Male

DRUGS (1)
  1. ALBUMIN (HUMAN) [Suspect]
     Active Substance: ALBUMIN HUMAN
     Indication: Product used for unknown indication
     Route: 065

REACTIONS (9)
  - Administration site infection [Unknown]
  - Bacterial infection [Unknown]
  - Blood pressure increased [Unknown]
  - Chills [Unknown]
  - Febrile nonhaemolytic transfusion reaction [Unknown]
  - Heart rate increased [Unknown]
  - Livedo reticularis [Unknown]
  - Staphylococcus test positive [Unknown]
  - Vascular device infection [Unknown]
